FAERS Safety Report 13897911 (Version 2)
Quarter: 2017Q3

REPORT INFORMATION
  Report Type: Spontaneous
  Country: US (occurrence: US)
  Receive Date: 20170823
  Receipt Date: 20170919
  Transmission Date: 20171127
  Serious: Yes (Other)
  Sender: FDA-Public Use
  Company Number: US-JAZZ-2017-US-009443

PATIENT
  Sex: Female
  Weight: 54.42 kg

DRUGS (7)
  1. MONTELUKAST [Concomitant]
     Active Substance: MONTELUKAST SODIUM
  2. XYREM [Suspect]
     Active Substance: SODIUM OXYBATE
     Indication: CATAPLEXY
     Dosage: 3G, BID
     Route: 048
     Dates: start: 2017
  3. NAPROSYN [Concomitant]
     Active Substance: NAPROXEN
  4. TYLENOL [Concomitant]
     Active Substance: ACETAMINOPHEN
  5. NORETHINDRONE                      /00044901/ [Concomitant]
     Active Substance: NORETHINDRONE
  6. XYREM [Suspect]
     Active Substance: SODIUM OXYBATE
     Indication: NARCOLEPSY
     Dosage: 2.25G, BID
     Route: 048
     Dates: start: 20170715
  7. CETRIZINE [Concomitant]
     Active Substance: CETIRIZINE HYDROCHLORIDE

REACTIONS (4)
  - Pharyngitis streptococcal [Recovered/Resolved]
  - Nasopharyngitis [Not Recovered/Not Resolved]
  - Sinusitis [Recovered/Resolved]
  - Headache [Recovered/Resolved]

NARRATIVE: CASE EVENT DATE: 2017
